FAERS Safety Report 19063130 (Version 2)
Quarter: 2021Q2

REPORT INFORMATION
  Report Type: Report from Study
  Country: US (occurrence: US)
  Receive Date: 20210326
  Receipt Date: 20210526
  Transmission Date: 20210717
  Serious: Yes (Other)
  Sender: FDA-Public Use
  Company Number: US-GLAXOSMITHKLINE-US2021AMR049864

PATIENT
  Sex: Male

DRUGS (1)
  1. BELANTAMAB MAFODOTIN. [Suspect]
     Active Substance: BELANTAMAB MAFODOTIN
     Indication: PRODUCT USED FOR UNKNOWN INDICATION
     Dosage: UNK
     Dates: start: 20210128

REACTIONS (6)
  - Plasma cell myeloma [Unknown]
  - Blindness [Unknown]
  - Night blindness [Unknown]
  - Visual acuity reduced [Unknown]
  - Keratopathy [Unknown]
  - Eye disorder [Unknown]
